FAERS Safety Report 7256224 (Version 4)
Quarter: 2014Q2

REPORT INFORMATION
  Report Type: Spontaneous
  Country: US (occurrence: US)
  Receive Date: 20100126
  Receipt Date: 20140402
  Transmission Date: 20141212
  Serious: Yes (Hospitalization, Other)
  Sender: FDA-Public Use
  Company Number: US-ALEXION-A201000041

PATIENT
  Age: 38 Year
  Sex: Male

DRUGS (1)
  1. SOLIRIS 300MG [Suspect]
     Indication: PAROXYSMAL NOCTURNAL HAEMOGLOBINURIA
     Dosage: 900 MG, Q2W
     Route: 042
     Dates: end: 20091231

REACTIONS (4)
  - Unevaluable event [Unknown]
  - Superior vena cava syndrome [Unknown]
  - Superior vena cava stenosis [Unknown]
  - Poor venous access [Unknown]
